FAERS Safety Report 7630050-3 (Version None)
Quarter: 2011Q3

REPORT INFORMATION
  Report Type: 
  Country: None (occurrence: None)
  Receive Date: 20110715
  Receipt Date: 20110510
  Transmission Date: 20111222
  Serious: Yes (Hospitalization)
  Sender: FDA-Public Use
  Company Number: 2011-165

PATIENT
  Age: 46 Year
  Sex: Female
  Weight: 72 kg

DRUGS (4)
  1. NAROPIN [Suspect]
     Dosage: MG, ONCE/HOUR, INTRATHECAL
     Route: 037
  2. MORPHINE SULFATE [Suspect]
     Dosage: MG, ONCE/HOUR, INTRATHECAL
     Route: 037
  3. CLONIDINE HCL [Suspect]
     Dosage: MG, ONCE/HOUR, INTRATHECAL
     Route: 037
  4. PRIALT [Suspect]
     Dosage: 0.15 MG, ONCE/HOUR, INTRATHECAL
     Route: 037
     Dates: start: 20110223, end: 20110401

REACTIONS (4)
  - ABNORMAL BEHAVIOUR [None]
  - CONFUSIONAL STATE [None]
  - EUPHORIC MOOD [None]
  - SPEECH DISORDER [None]
